FAERS Safety Report 14493112 (Version 2)
Quarter: 2018Q1

REPORT INFORMATION
  Report Type: Spontaneous
  Country: RU (occurrence: RU)
  Receive Date: 20180206
  Receipt Date: 20180214
  Transmission Date: 20180509
  Serious: Yes (Hospitalization)
  Sender: FDA-Public Use
  Company Number: RU-ASTRAZENECA-2017SF31596

PATIENT
  Age: 77 Year
  Sex: Female
  Weight: 115 kg

DRUGS (9)
  1. FERRETAB [Concomitant]
  2. BISOPROLOL [Concomitant]
     Active Substance: BISOPROLOL
  3. CRESTOR [Concomitant]
     Active Substance: ROSUVASTATIN CALCIUM
  4. ACECARDOL [Concomitant]
     Active Substance: ASPIRIN
  5. INSULIN [Concomitant]
     Active Substance: INSULIN NOS
  6. FORXIGA [Suspect]
     Active Substance: DAPAGLIFLOZIN
     Indication: TYPE 2 DIABETES MELLITUS
     Route: 048
     Dates: start: 201708
  7. VEROSPIRON [Concomitant]
     Active Substance: SPIRONOLACTONE
  8. PLAGRIL [Concomitant]
     Active Substance: CLOPIDOGREL BISULFATE
  9. CARDIOMAGNYL [Concomitant]
     Active Substance: ASPIRIN\MAGNESIUM HYDROXIDE

REACTIONS (4)
  - Off label use [Unknown]
  - Product use issue [Unknown]
  - Herpes zoster [Recovering/Resolving]
  - Diarrhoea [Unknown]

NARRATIVE: CASE EVENT DATE: 2017
